FAERS Safety Report 25671018 (Version 5)
Quarter: 2025Q4

REPORT INFORMATION
  Report Type: Report from Study
  Country: MY (occurrence: MY)
  Receive Date: 20250812
  Receipt Date: 20251007
  Transmission Date: 20260118
  Serious: Yes (Death, Hospitalization, Other)
  Sender: PFIZER
  Company Number: MY-TAKEDA-2025TUS070171

PATIENT
  Age: 37 Year
  Sex: Female

DRUGS (7)
  1. ADCETRIS [Suspect]
     Active Substance: BRENTUXIMAB VEDOTIN
     Indication: Hodgkin^s disease mixed cellularity stage unspecified
     Dosage: 100 MG
     Route: 042
     Dates: start: 20250730, end: 20250730
  2. VINBLASTINE [Suspect]
     Active Substance: VINBLASTINE
     Indication: Hodgkin^s disease mixed cellularity stage unspecified
     Dosage: 30 MG
     Dates: start: 20250730, end: 20250730
  3. DOXORUBICIN HYDROCHLORIDE [Suspect]
     Active Substance: DOXORUBICIN HYDROCHLORIDE
     Indication: Hodgkin^s disease mixed cellularity stage unspecified
     Dosage: 60 MILLIGRAM
     Route: 065
     Dates: start: 20250723, end: 20250723
  4. DACARBAZINE [Suspect]
     Active Substance: DACARBAZINE
     Indication: Hodgkin^s disease mixed cellularity stage unspecified
     Dosage: UNK
     Route: 065
     Dates: start: 20250723
  5. CYCLOPHOSPHAMIDE [Suspect]
     Active Substance: CYCLOPHOSPHAMIDE
     Indication: Hodgkin^s disease mixed cellularity stage unspecified
     Dosage: 2000 MILLIGRAM
     Route: 065
     Dates: start: 20250723, end: 20250723
  6. ETOPOSIDE [Suspect]
     Active Substance: ETOPOSIDE
     Indication: Hodgkin^s disease mixed cellularity stage unspecified
     Dosage: 300 MILLIGRAM
     Route: 065
     Dates: start: 20250723, end: 20250725
  7. DEXAMETHASONE [Concomitant]
     Active Substance: DEXAMETHASONE
     Dosage: UNK

REACTIONS (2)
  - Shock [Fatal]
  - Neutropenia [Fatal]

NARRATIVE: CASE EVENT DATE: 20250805
